FAERS Safety Report 25673005 (Version 2)
Quarter: 2025Q4

REPORT INFORMATION
  Report Type: Report from Study
  Country: US (occurrence: US)
  Receive Date: 20250812
  Receipt Date: 20251203
  Transmission Date: 20260117
  Serious: Yes (Death, Hospitalization, Other)
  Sender: ABBVIE
  Company Number: US-ABBVIE-6409618

PATIENT
  Age: 68 Year
  Sex: Female

DRUGS (1)
  1. SKYRIZI [Suspect]
     Active Substance: RISANKIZUMAB-RZAA
     Indication: Psoriatic arthropathy
     Dosage: TIME INTERVAL: TOTAL: STRENGTH: 150 MG/ML ,?WEEK 0
     Route: 058
     Dates: start: 20250611, end: 20250611

REACTIONS (7)
  - Death [Fatal]
  - Pulmonary oedema [Unknown]
  - Back pain [Unknown]
  - Chest pain [Unknown]
  - Asthenia [Unknown]
  - Pneumonia [Not Recovered/Not Resolved]
  - Lung neoplasm malignant [Unknown]

NARRATIVE: CASE EVENT DATE: 20250101
